FAERS Safety Report 6538389-X (Version None)
Quarter: 2010Q1

REPORT INFORMATION
  Report Type: 
  Country: None (occurrence: None)
  Receive Date: 20100114
  Receipt Date: 20100107
  Transmission Date: 20100710
  Serious: Yes (Hospitalization)
  Sender: FDA-Public Use
  Company Number: FR-GENENTECH-296770

PATIENT
  Age: 18 Year
  Sex: Female

DRUGS (4)
  1. MABTHERA [Suspect]
     Indication: JUVENILE ARTHRITIS
     Dosage: 1 G, Q15D
     Route: 042
     Dates: start: 20090701, end: 20090701
  2. SOLU-MEDROL [Suspect]
     Indication: PREMEDICATION
     Dosage: UNK
     Route: 065
     Dates: start: 20090701, end: 20090701
  3. METHOTREXATE [Concomitant]
     Dosage: UNK
  4. ENBREL [Concomitant]
     Dosage: UNK

REACTIONS (1)
  - OSTEONECROSIS [None]
